FAERS Safety Report 9030499 (Version 1)
Quarter: 2013Q1

REPORT INFORMATION
  Report Type: Spontaneous
  Country: FR (occurrence: FR)
  Receive Date: 20130122
  Receipt Date: 20130122
  Transmission Date: 20140127
  Serious: Yes (Hospitalization)
  Sender: FDA-Public Use
  Company Number: FR-ASTRAZENECA-2013SE02447

PATIENT
  Age: 49 Year
  Sex: Male

DRUGS (4)
  1. INEXIUM [Suspect]
     Route: 048
     Dates: start: 201211
  2. KARDEGIC [Concomitant]
  3. PARACETAMOL [Concomitant]
  4. TAHOR [Concomitant]

REACTIONS (4)
  - Diplopia [Unknown]
  - IVth nerve paralysis [Unknown]
  - Headache [Unknown]
  - Vertigo [Unknown]
